FAERS Safety Report 11616887 (Version 1)
Quarter: 2015Q4

REPORT INFORMATION
  Report Type: Spontaneous
  Country: JP (occurrence: JP)
  Receive Date: 20151009
  Receipt Date: 20151009
  Transmission Date: 20160304
  Serious: Yes (Hospitalization, Other)
  Sender: FDA-Public Use
  Company Number: JP-JNJFOC-20150823115

PATIENT
  Age: 4 Decade
  Sex: Female

DRUGS (6)
  1. FENTOS TAPE [Concomitant]
     Active Substance: FENTANYL
     Indication: PRODUCT USED FOR UNKNOWN INDICATION
     Route: 065
  2. DIAZEPAM. [Suspect]
     Active Substance: DIAZEPAM
     Indication: PRODUCT USED FOR UNKNOWN INDICATION
     Route: 065
  3. OPSO [Concomitant]
     Active Substance: MORPHINE HYDROCHLORIDE
     Indication: PRODUCT USED FOR UNKNOWN INDICATION
     Route: 048
  4. DUROTEP MT [Suspect]
     Active Substance: FENTANYL
     Indication: PAIN
     Dosage: EVERY 3 DAYS TO EVERY 2 DAYS TO EVERY 1.5 DAY, AND FROM EVERY 1.5 DAY TO EVERY DAY
     Route: 062
     Dates: end: 20150905
  5. ANPEC (MORPHINE HYDROCHLORIDE) [Concomitant]
     Active Substance: VERAPAMIL HYDROCHLORIDE
     Route: 054
  6. OXYCONTIN [Concomitant]
     Active Substance: OXYCODONE HYDROCHLORIDE
     Indication: PRODUCT USED FOR UNKNOWN INDICATION
     Route: 048

REACTIONS (17)
  - Hallucination [Unknown]
  - Hyperhidrosis [Recovering/Resolving]
  - Lacrimation increased [Recovering/Resolving]
  - Somnolence [Recovered/Resolved]
  - Irritability [Recovering/Resolving]
  - Drug dependence [Unknown]
  - Pyrexia [Recovering/Resolving]
  - Nausea [Recovering/Resolving]
  - Miosis [Recovered/Resolved]
  - Inappropriate schedule of drug administration [Unknown]
  - Decreased appetite [Recovered/Resolved]
  - Wrong technique in product usage process [Unknown]
  - Drug dependence [Unknown]
  - Salivary hypersecretion [Recovering/Resolving]
  - Tremor [Recovering/Resolving]
  - Withdrawal syndrome [Recovering/Resolving]
  - Delusion [Unknown]

NARRATIVE: CASE EVENT DATE: 2010
